FAERS Safety Report 14719405 (Version 1)
Quarter: 2018Q2

REPORT INFORMATION
  Report Type: Spontaneous
  Country: US (occurrence: US)
  Receive Date: 20180405
  Receipt Date: 20180405
  Transmission Date: 20180711
  Serious: No
  Sender: FDA-Public Use
  Company Number: US-LUPIN PHARMACEUTICALS INC.-2017-07608

PATIENT
  Age: 76 Year
  Sex: Female
  Weight: 71.2 kg

DRUGS (4)
  1. DULOXETINE DELAYED-RELEASE CAPSULES 30 MG [Suspect]
     Active Substance: DULOXETINE HYDROCHLORIDE
     Indication: NEURALGIA
     Dosage: 5 MG, BID (OPENING THE CAPSULES)
     Route: 048
  2. DULOXETINE DELAYED-RELEASE CAPSULES 30 MG [Suspect]
     Active Substance: DULOXETINE HYDROCHLORIDE
     Indication: ANXIETY
     Dosage: 1 DF, BID 30MG IN THE AM AND 30MG IN THE PM
     Route: 048
     Dates: start: 2009
  3. DULOXETINE DELAYED-RELEASE CAPSULES 30 MG [Suspect]
     Active Substance: DULOXETINE HYDROCHLORIDE
     Indication: DEPRESSION
     Dosage: 5 MG, UNK (EVERY 2-3 WEEKS)
     Route: 048
  4. NALTREXONE [Concomitant]
     Active Substance: NALTREXONE
     Indication: AUTOIMMUNE DISORDER
     Dosage: 4.5 MG, QD
     Route: 048
     Dates: start: 201706

REACTIONS (9)
  - Anxiety [Not Recovered/Not Resolved]
  - Somnolence [Not Recovered/Not Resolved]
  - Cold-stimulus headache [Not Recovered/Not Resolved]
  - Crying [Recovered/Resolved]
  - Dizziness [Recovered/Resolved]
  - Balance disorder [Recovered/Resolved]
  - Feeling abnormal [None]
  - Wrong technique in product usage process [Unknown]
  - Emotional disorder [Recovered/Resolved]

NARRATIVE: CASE EVENT DATE: 20171217
